FAERS Safety Report 4544547-6 (Version None)
Quarter: 2005Q1

REPORT INFORMATION
  Report Type: 
  Country: None (occurrence: None)
  Receive Date: 20050104
  Receipt Date: 20041220
  Transmission Date: 20050727
  Serious: Yes (Hospitalization)
  Sender: FDA-Public Use
  Company Number: 9535

PATIENT
  Age: 69 Year
  Sex: Female

DRUGS (3)
  1. AMIODARONE [Suspect]
     Indication: ATRIAL FIBRILLATION
     Dosage: 100 MG FREQ, PO
     Route: 048
     Dates: start: 20021113, end: 20040907
  2. WARFARIN [Concomitant]
  3. ISOSORBIDE [Concomitant]

REACTIONS (1)
  - HEPATITIS [None]
